FAERS Safety Report 6706950-5 (Version None)
Quarter: 2010Q2

REPORT INFORMATION
  Report Type: 
  Country: None (occurrence: None)
  Receive Date: 20100503
  Receipt Date: 20090602
  Transmission Date: 20101027
  Serious: Yes (Death, Other)
  Sender: FDA-Public Use
  Company Number: JP-BAYER-200911488BYL

PATIENT
  Age: 69 Year
  Sex: Male
  Weight: 58 kg

DRUGS (11)
  1. NEXAVAR [Suspect]
     Indication: RENAL CELL CARCINOMA STAGE IV
     Dosage: UNIT DOSE: 200 MG
     Route: 048
     Dates: start: 20090421
  2. NEXAVAR [Suspect]
     Dosage: UNIT DOSE: 200 MG
     Route: 048
     Dates: start: 20090428, end: 20090502
  3. NEXAVAR [Suspect]
     Dosage: TOTAL DAILY DOSE: 200 MG  UNIT DOSE: 200 MG
     Route: 048
     Dates: start: 20090414
  4. DAI-KENCHU-TO [Concomitant]
     Indication: CONSTIPATION
     Route: 048
     Dates: start: 20090227
  5. MAGLAX [Concomitant]
     Indication: CONSTIPATION
     Route: 048
     Dates: start: 20090227
  6. SIGMART [Concomitant]
     Indication: ARRHYTHMIA
     Route: 048
     Dates: start: 20090304
  7. OMEPRAL [Concomitant]
     Indication: STRESS ULCER
     Route: 048
     Dates: start: 20090319
  8. LENDORMIN [Concomitant]
     Indication: INSOMNIA
     Route: 048
     Dates: start: 20090325
  9. SELBEX [Concomitant]
     Indication: GASTRITIS
     Route: 048
     Dates: start: 20090327
  10. RINDERON [Concomitant]
     Indication: OSTEOMYELITIS
     Route: 048
     Dates: start: 20090327
  11. LOXONIN [Concomitant]
     Indication: CANCER PAIN
     Route: 048
     Dates: start: 20090408

REACTIONS (2)
  - CARDIAC FAILURE ACUTE [None]
  - LIVER DISORDER [None]
